FAERS Safety Report 5037204-3 (Version None)
Quarter: 2006Q2

REPORT INFORMATION
  Report Type: 
  Country: None (occurrence: None)
  Receive Date: 20060628
  Receipt Date: 20060614
  Transmission Date: 20061013
  Serious: Yes (Hospitalization, Other)
  Sender: FDA-Public Use
  Company Number: FR-ABBOTT-06P-114-0336091-00

PATIENT
  Age: 39 Year
  Sex: Male

DRUGS (1)
  1. DIVALPROATE [Suspect]
     Indication: DRUG USE FOR UNKNOWN INDICATION
     Dosage: 90 TABLETS, 45 GRAMS
     Route: 048

REACTIONS (3)
  - COMA [None]
  - DIABETES INSIPIDUS [None]
  - POISONING DELIBERATE [None]
